FAERS Safety Report 22217707 (Version 1)
Quarter: 2023Q2

REPORT INFORMATION
  Report Type: Spontaneous
  Country: US (occurrence: US)
  Receive Date: 20230417
  Receipt Date: 20230417
  Transmission Date: 20230722
  Serious: Yes (Other)
  Sender: FDA-Public Use
  Company Number: US-JNJFOC-20230424709

PATIENT
  Age: 68 Year
  Sex: Male

DRUGS (1)
  1. ERLEADA [Suspect]
     Active Substance: APALUTAMIDE
     Indication: Prostate cancer
     Dosage: LAST DOSE IN JAN-2023
     Route: 048

REACTIONS (2)
  - Prostate cancer [Unknown]
  - Treatment delayed [Unknown]

NARRATIVE: CASE EVENT DATE: 20230410
